FAERS Safety Report 4490056-2 (Version None)
Quarter: 2004Q4

REPORT INFORMATION
  Report Type: 
  Country: None (occurrence: None)
  Receive Date: 20041027
  Receipt Date: 20041012
  Transmission Date: 20050328
  Serious: Yes (Hospitalization)
  Sender: FDA-Public Use
  Company Number: 2004-BP-09756RO

PATIENT
  Age: 61 Year
  Sex: Male

DRUGS (14)
  1. DEXAMETHASONE [Suspect]
     Indication: MULTIPLE MYELOMA
     Dosage: CYCLIC:  40 MG/DAY, PO
     Route: 048
     Dates: start: 20030112, end: 20030122
  2. GENASENSE [Suspect]
     Indication: MULTIPLE MYELOMA
     Dosage: CYCLIC:  7 MG/KG/DAY, IV
     Route: 042
     Dates: start: 20030102, end: 20030123
  3. GENASENSE [Suspect]
  4. TRIMETHOPRIM W/SULFAMETHOXAZOLE (BACTRIM) [Concomitant]
  5. RANIDITINE (RANITIDINE) [Concomitant]
  6. VALSARTAN (VALSARTAN) [Concomitant]
  7. INSULIN [Concomitant]
  8. CELECOXIB (CELECOXIB) [Concomitant]
  9. GLYBURIDE [Concomitant]
  10. GEMFIBROZIL [Concomitant]
  11. NIFEDIPINE [Concomitant]
  12. ACETAMINOPHEN [Concomitant]
  13. PANTOPRAZOLE (PANTOPRAZOLE) [Concomitant]
  14. MULTIPLE VITAMIN (MULTIVITAMINS) [Concomitant]

REACTIONS (4)
  - ATELECTASIS [None]
  - HYPERGLYCAEMIA [None]
  - PNEUMONIA [None]
  - RENAL FAILURE CHRONIC [None]
